FAERS Safety Report 13395593 (Version 1)
Quarter: 2017Q2

REPORT INFORMATION
  Report Type: Spontaneous
  Country: US (occurrence: US)
  Receive Date: 20170401
  Receipt Date: 20170401
  Transmission Date: 20170830
  Serious: Yes (Hospitalization)
  Sender: FDA-Public Use
  Company Number: None

PATIENT
  Age: 42 Year
  Sex: Female
  Weight: 72 kg

DRUGS (2)
  1. SYNTHROID [Concomitant]
     Active Substance: LEVOTHYROXINE SODIUM
  2. EQUATE ALLERGY RELIEF (LORATADINE) [Suspect]
     Active Substance: LORATADINE
     Indication: MULTIPLE ALLERGIES
     Dosage: ?          QUANTITY:45 TABLET(S);?
     Route: 048
     Dates: start: 20170326, end: 20170326

REACTIONS (5)
  - Nausea [None]
  - Vomiting [None]
  - Vertigo [None]
  - Tremor [None]
  - Hyperhidrosis [None]

NARRATIVE: CASE EVENT DATE: 20170326
